FAERS Safety Report 5044465-3 (Version None)
Quarter: 2006Q3

REPORT INFORMATION
  Report Type: 
  Country: None (occurrence: None)
  Receive Date: 20060706
  Receipt Date: 20060630
  Transmission Date: 20061208
  Serious: Yes (Other)
  Sender: FDA-Public Use
  Company Number: BR-GLAXOSMITHKLINE-A0611142A

PATIENT
  Age: 23 Year
  Sex: Female

DRUGS (1)
  1. AEROLIN [Suspect]
     Indication: PREMATURE LABOUR
     Dosage: 2MG FOUR TIMES PER DAY
     Route: 065
     Dates: start: 20051101, end: 20051105

REACTIONS (5)
  - ABDOMINAL PAIN [None]
  - CYANOSIS [None]
  - DRUG EXPOSURE DURING PREGNANCY [None]
  - INTRA-UTERINE DEATH [None]
  - TACHYCARDIA [None]
